FAERS Safety Report 9257346 (Version 1)
Quarter: 2013Q2

REPORT INFORMATION
  Report Type: Spontaneous
  Country: US (occurrence: None)
  Receive Date: 20130423
  Receipt Date: 20130423
  Transmission Date: 20140414
  Serious: Yes (Other)
  Sender: FDA-Public Use
  Company Number: AUR-APL-2013-03216

PATIENT
  Age: 50 Year
  Sex: Female

DRUGS (3)
  1. PAROXETINE [Suspect]
     Indication: POST-TRAUMATIC STRESS DISORDER
  2. BUPROPION [Suspect]
     Indication: FATIGUE
  3. LORAZEPAM [Suspect]
     Indication: POST-TRAUMATIC STRESS DISORDER

REACTIONS (22)
  - Constipation [None]
  - Weight increased [None]
  - Asthenia [None]
  - Libido decreased [None]
  - Withdrawal syndrome [None]
  - Agitation [None]
  - Insomnia [None]
  - Tachycardia [None]
  - Condition aggravated [None]
  - Mood altered [None]
  - Self esteem decreased [None]
  - Depression [None]
  - Suicide attempt [None]
  - Homicidal ideation [None]
  - Drug administration error [None]
  - Feeling of despair [None]
  - Intentional self-injury [None]
  - Negativism [None]
  - Flat affect [None]
  - Dissociation [None]
  - Central obesity [None]
  - Motor dysfunction [None]
